FAERS Safety Report 22139825 (Version 1)
Quarter: 2023Q1

REPORT INFORMATION
  Report Type: Report from Study
  Country: CO (occurrence: CO)
  Receive Date: 20230327
  Receipt Date: 20230327
  Transmission Date: 20230417
  Serious: Yes (Hospitalization, Other)
  Sender: FDA-Public Use
  Company Number: CO-ABBVIE-4704020

PATIENT
  Sex: Male
  Weight: 58 kg

DRUGS (2)
  1. HUMIRA [Suspect]
     Active Substance: ADALIMUMAB
     Indication: Hidradenitis
     Route: 058
     Dates: start: 20190118
  2. HUMIRA [Suspect]
     Active Substance: ADALIMUMAB

REACTIONS (12)
  - Hidradenitis [Recovered/Resolved]
  - Malaise [Recovered/Resolved]
  - Pain [Recovered/Resolved]
  - Purulent discharge [Recovering/Resolving]
  - Immunodeficiency [Recovering/Resolving]
  - Haemoglobin decreased [Recovered/Resolved]
  - Insomnia [Recovering/Resolving]
  - Tremor [Recovered/Resolved]
  - Oropharyngeal pain [Recovering/Resolving]
  - Wound [Recovering/Resolving]
  - Penis disorder [Not Recovered/Not Resolved]
  - Platelet disorder [Recovered/Resolved]
